FAERS Safety Report 5394179-5 (Version None)
Quarter: 2007Q3

REPORT INFORMATION
  Report Type: 
  Country: None (occurrence: None)
  Receive Date: 20070723
  Receipt Date: 20070518
  Transmission Date: 20080115
  Serious: No
  Sender: FDA-Public Use
  Company Number: A0644635A

PATIENT
  Age: 81 Year
  Sex: Male

DRUGS (6)
  1. AVANDIA [Suspect]
     Dosage: 2MG TWICE PER DAY
     Route: 048
     Dates: start: 20070216
  2. GLYBURIDE [Concomitant]
  3. UNKNOWN MEDICATION [Concomitant]
  4. COREG [Concomitant]
  5. ALDACTONE [Concomitant]
  6. ASPIRIN [Concomitant]

REACTIONS (4)
  - BLISTER [None]
  - OEDEMA PERIPHERAL [None]
  - OPEN WOUND [None]
  - WEIGHT INCREASED [None]
